FAERS Safety Report 6168365-0 (Version None)
Quarter: 2009Q2

REPORT INFORMATION
  Report Type: 
  Country: None (occurrence: None)
  Receive Date: 20090422
  Receipt Date: 20090407
  Transmission Date: 20091009
  Serious: Yes (Hospitalization)
  Sender: FDA-Public Use
  Company Number: 2009-01417

PATIENT
  Age: 48 Year
  Sex: Female
  Weight: 52 kg

DRUGS (2)
  1. VELCADE [Suspect]
     Indication: MULTIPLE MYELOMA
     Dosage: 1.3 MG/M2, INTRAVENOUS
     Route: 042
     Dates: start: 20090109, end: 20090202
  2. DEXAMETHASONE 4MG TAB [Concomitant]

REACTIONS (5)
  - COMPRESSION FRACTURE [None]
  - MUSCULOSKELETAL CHEST PAIN [None]
  - PATHOLOGICAL FRACTURE [None]
  - RIB FRACTURE [None]
  - THORACIC VERTEBRAL FRACTURE [None]
